FAERS Safety Report 23189325 (Version 3)
Quarter: 2023Q4

REPORT INFORMATION
  Report Type: Report from Study
  Country: CN (occurrence: CN)
  Receive Date: 20231116
  Receipt Date: 20231207
  Transmission Date: 20240110
  Serious: Yes (Hospitalization)
  Sender: FDA-Public Use
  Company Number: CN-ANTENGENE-20230801923

PATIENT
  Age: 59 Year
  Sex: Female
  Weight: 48 kg

DRUGS (4)
  1. TORIPALIMAB [Suspect]
     Active Substance: TORIPALIMAB
     Indication: Cervix carcinoma
     Dosage: 240 MG
     Route: 042
     Dates: start: 20230616, end: 20230712
  2. TORIPALIMAB [Suspect]
     Active Substance: TORIPALIMAB
     Dosage: 240 MG
     Route: 042
     Dates: start: 20230824
  3. ONATASERTIB [Suspect]
     Active Substance: ONATASERTIB
     Indication: Cervix carcinoma
     Dosage: 15 MG, DAILY
     Route: 048
     Dates: start: 20230616, end: 20230807
  4. ONATASERTIB [Suspect]
     Active Substance: ONATASERTIB
     Dosage: 15 MG, DAILY
     Route: 048
     Dates: start: 20230824

REACTIONS (2)
  - Leukoerythroblastic anaemia [Not Recovered/Not Resolved]
  - Platelet count decreased [Recovering/Resolving]

NARRATIVE: CASE EVENT DATE: 20230629
